FAERS Safety Report 8290505-8 (Version None)
Quarter: 2012Q2

REPORT INFORMATION
  Report Type: 
  Country: None (occurrence: None)
  Receive Date: 20120417
  Receipt Date: 20110519
  Transmission Date: 20120825
  Serious: No
  Sender: FDA-Public Use
  Company Number: US-ASTRAZENECA-2011SE17792

PATIENT
  Age: 52 Year
  Sex: Male

DRUGS (2)
  1. NEXIUM [Suspect]
     Route: 048
  2. ZEGERID [Concomitant]

REACTIONS (4)
  - BARRETT'S OESOPHAGUS [None]
  - ABDOMINAL DISCOMFORT [None]
  - OESOPHAGEAL DISORDER [None]
  - ENDOSCOPY [None]
